FAERS Safety Report 14952388 (Version 1)
Quarter: 2018Q2

REPORT INFORMATION
  Report Type: Spontaneous
  Country: US (occurrence: US)
  Receive Date: 20180530
  Receipt Date: 20180530
  Transmission Date: 20180711
  Serious: No
  Sender: FDA-Public Use
  Company Number: US-PFIZER INC-2018214978

PATIENT
  Age: 73 Year
  Sex: Male

DRUGS (2)
  1. XALKORI [Suspect]
     Active Substance: CRIZOTINIB
     Indication: LUNG CARCINOMA CELL TYPE UNSPECIFIED STAGE IV
     Dosage: 250 MG, 2X/DAY
     Route: 048
     Dates: start: 201708
  2. HYDROCODONE/ACETAMINOPHEN [Concomitant]
     Active Substance: ACETAMINOPHEN\HYDROCODONE
     Indication: PAIN
     Dosage: 3 DF, UNK, [HYDROCODONE, 5 MG]/ [ACETAMINOPHEN, 325 MG], THREE PILLS A DAY EVERY 4 TO 6 HOURS
     Dates: start: 2015

REACTIONS (11)
  - Dyspepsia [Recovered/Resolved]
  - Protein total decreased [Unknown]
  - Peripheral venous disease [Unknown]
  - Gait disturbance [Unknown]
  - Oedema peripheral [Not Recovered/Not Resolved]
  - Pain [Unknown]
  - Joint swelling [Recovering/Resolving]
  - Memory impairment [Unknown]
  - Dysgeusia [Unknown]
  - Condition aggravated [Not Recovered/Not Resolved]
  - Fatigue [Unknown]

NARRATIVE: CASE EVENT DATE: 20180214
